FAERS Safety Report 16107512 (Version 3)
Quarter: 2019Q2

REPORT INFORMATION
  Report Type: Spontaneous
  Country: US (occurrence: US)
  Receive Date: 20190322
  Receipt Date: 20190419
  Transmission Date: 20190711
  Serious: Yes (Hospitalization, Other)
  Sender: FDA-Public Use
  Company Number: US-GILEAD-2019-0397361

PATIENT
  Age: 66 Year
  Sex: Male
  Weight: 64 kg

DRUGS (3)
  1. DAPSONE. [Suspect]
     Active Substance: DAPSONE
     Indication: PROPHYLAXIS
     Route: 065
  2. YESCARTA [Suspect]
     Active Substance: AXICABTAGENE CILOLEUCEL
     Indication: DIFFUSE LARGE B-CELL LYMPHOMA
     Dosage: UNK
     Route: 042
     Dates: start: 20181210, end: 20181210
  3. SUBUTEX [Concomitant]
     Active Substance: BUPRENORPHINE HYDROCHLORIDE
     Indication: DRUG DEPENDENCE

REACTIONS (11)
  - Methaemoglobinaemia [Recovered/Resolved]
  - Diffuse large B-cell lymphoma [Unknown]
  - Sleep apnoea syndrome [Unknown]
  - Malnutrition [Unknown]
  - Hypoxia [Recovered/Resolved]
  - Bacterial test positive [Recovered/Resolved]
  - Constipation [Unknown]
  - Vomiting [Unknown]
  - Staphylococcal infection [Recovered/Resolved]
  - Dyspepsia [Unknown]
  - Neutropenia [Unknown]

NARRATIVE: CASE EVENT DATE: 2019
